FAERS Safety Report 9109971 (Version 9)
Quarter: 2014Q1

REPORT INFORMATION
  Report Type: Report from Study
  Country: US (occurrence: US)
  Receive Date: 20130222
  Receipt Date: 20140221
  Transmission Date: 20141002
  Serious: Yes (Hospitalization)
  Sender: FDA-Public Use
  Company Number: US-ACTELION-A-US2013-79371

PATIENT
  Age: 51 Year
  Sex: Female

DRUGS (6)
  1. VELETRI [Suspect]
     Indication: PULMONARY ARTERIAL HYPERTENSION
     Dosage: 17 NG/KG, UNK
     Route: 042
     Dates: start: 20130304
  2. VELETRI [Suspect]
     Dosage: 15 NG/KG, PER MIN
     Route: 042
     Dates: start: 20121208
  3. VELETRI [Suspect]
     Dosage: 10 NG/KG, PER MIN
     Route: 042
     Dates: start: 20121204
  4. VELETRI [Suspect]
     Dosage: 18 NG/KG, PER MIN
     Route: 042
     Dates: start: 20130302, end: 20130303
  5. REMICADE [Suspect]
  6. LETAIRIS [Concomitant]

REACTIONS (14)
  - Crohn^s disease [Unknown]
  - Decreased appetite [Unknown]
  - Disease complication [Unknown]
  - Confusional state [Unknown]
  - Dehydration [Unknown]
  - Vomiting [Unknown]
  - Diarrhoea [Unknown]
  - Nausea [Unknown]
  - Dizziness [Unknown]
  - Drug intolerance [Unknown]
  - Catheter site pain [Recovering/Resolving]
  - Catheter site erythema [Unknown]
  - Catheter site discharge [Unknown]
  - Device breakage [Not Recovered/Not Resolved]
